FAERS Safety Report 10564600 (Version 1)
Quarter: 2014Q4

REPORT INFORMATION
  Report Type: Spontaneous
  Country: US (occurrence: US)
  Receive Date: 20141104
  Receipt Date: 20141104
  Transmission Date: 20150529
  Serious: Yes (Other)
  Sender: FDA-Public Use
  Company Number: US-ASTRAZENECA-2014SE82223

PATIENT
  Age: 77 Year
  Sex: Female
  Weight: 78 kg

DRUGS (19)
  1. CRESTOR [Suspect]
     Active Substance: ROSUVASTATIN CALCIUM
     Indication: BLOOD CHOLESTEROL ABNORMAL
     Route: 048
     Dates: start: 2004
  2. COQ10 [Concomitant]
     Active Substance: UBIDECARENONE
  3. HOPPS VALERIAN [Concomitant]
  4. GLUCOSAMINE [Concomitant]
     Active Substance: GLUCOSAMINE
  5. GINGER ROOT [Concomitant]
  6. HIGHLANDER [Concomitant]
  7. NIACIN. [Suspect]
     Active Substance: NIACIN
     Route: 065
  8. CHONDROITIN [Concomitant]
     Active Substance: CHONDROITIN
  9. VITAMIN C [Concomitant]
     Active Substance: ASCORBIC ACID
  10. GARLIC. [Concomitant]
     Active Substance: GARLIC
  11. MAGNESIUM [Concomitant]
     Active Substance: MAGNESIUM
  12. BURBOCK ROOT [Concomitant]
  13. VITAMIN K [Concomitant]
     Active Substance: PHYTONADIONE
  14. GINKO BILOBA [Concomitant]
  15. VIT D 3 [Concomitant]
  16. BLACK SHERRRY [Concomitant]
  17. GRAPE SEED [Concomitant]
  18. HAWTHORNE EXTRACT [Concomitant]
  19. VITAMIN B12 [Concomitant]
     Active Substance: CYANOCOBALAMIN

REACTIONS (5)
  - Colon cancer stage III [Recovered/Resolved]
  - Intentional product misuse [Unknown]
  - Parosmia [Unknown]
  - Blood cholesterol increased [Unknown]
  - Hypersensitivity [Unknown]

NARRATIVE: CASE EVENT DATE: 2014
